FAERS Safety Report 9296649 (Version 2)
Quarter: 2013Q3

REPORT INFORMATION
  Report Type: Spontaneous
  Country: US (occurrence: US)
  Receive Date: 20130517
  Receipt Date: 20130703
  Transmission Date: 20140515
  Serious: Yes (Hospitalization, Other)
  Sender: FDA-Public Use
  Company Number: US-UCBSA-085790

PATIENT
  Age: 50 Year
  Sex: Female
  Weight: 49.89 kg

DRUGS (7)
  1. VIMPAT [Suspect]
     Indication: COMPLEX PARTIAL SEIZURES
     Dosage: UNKNOWN DOSE
     Dates: start: 201206
  2. VIMPAT [Suspect]
     Indication: COMPLEX PARTIAL SEIZURES
     Dates: start: 201301, end: 2013
  3. VIMPAT [Suspect]
     Indication: COMPLEX PARTIAL SEIZURES
     Dates: start: 2013, end: 2013
  4. VIMPAT [Suspect]
     Indication: COMPLEX PARTIAL SEIZURES
     Dosage: 150 MG AT NIGHT + 100 MG AT DAY
     Dates: start: 201303, end: 2013
  5. VIMPAT [Suspect]
     Indication: COMPLEX PARTIAL SEIZURES
     Dates: start: 201304
  6. AMBIEN [Concomitant]
     Dosage: UNKNOWN DOSE
  7. DILAUDID [Concomitant]
     Indication: PAIN
     Dates: start: 2013

REACTIONS (4)
  - Pneumonia [Recovered/Resolved]
  - Grand mal convulsion [Unknown]
  - Therapeutic response unexpected [Unknown]
  - Blood glucose increased [Recovered/Resolved]
